FAERS Safety Report 4398085-4 (Version None)
Quarter: 2004Q3

REPORT INFORMATION
  Report Type: 
  Country: None (occurrence: None)
  Receive Date: 20040714
  Receipt Date: 20040714
  Transmission Date: 20050211
  Serious: Yes (Other)
  Sender: FDA-Public Use
  Company Number: None

PATIENT
  Sex: Male
  Weight: 101.6057 kg

DRUGS (1)
  1. MUCINEX [Suspect]
     Dosage: 1 PILL AS NEEDED ORAL
     Route: 048

REACTIONS (1)
  - HEART RATE INCREASED [None]
